FAERS Safety Report 7781249-7 (Version None)
Quarter: 2011Q3

REPORT INFORMATION
  Report Type: 
  Country: None (occurrence: None)
  Receive Date: 20110927
  Receipt Date: 20110915
  Transmission Date: 20111222
  Serious: Yes (Hospitalization)
  Sender: FDA-Public Use
  Company Number: US-BAYER-2011-087012

PATIENT
  Age: 49 Year
  Sex: Female
  Weight: 72 kg

DRUGS (5)
  1. CHANTIX [Suspect]
     Dosage: 1 MG, BID
     Route: 048
     Dates: start: 20110101, end: 20110603
  2. ALEVE (CAPLET) [Suspect]
     Indication: PSYCHIATRIC SYMPTOM
     Dosage: UNK UNK, OW
  3. CHANTIX [Suspect]
     Indication: SMOKING CESSATION THERAPY
     Dosage: DAILY DOSE .5 MG
     Route: 048
     Dates: start: 20110518
  4. ALEVE (CAPLET) [Suspect]
     Indication: MUSCULOSKELETAL DISCOMFORT
  5. XANAX [Suspect]
     Indication: INSOMNIA
     Dosage: DAILY DOSE 1 MG
     Route: 048

REACTIONS (8)
  - DEPRESSION [None]
  - ANGER [None]
  - IRRITABILITY [None]
  - PERSONALITY CHANGE [None]
  - DRUG INEFFECTIVE [None]
  - NAUSEA [None]
  - SUICIDE ATTEMPT [None]
  - ABNORMAL BEHAVIOUR [None]
